FAERS Safety Report 16327866 (Version 6)
Quarter: 2019Q3

REPORT INFORMATION
  Report Type: Spontaneous
  Country: US (occurrence: US)
  Receive Date: 20190518
  Receipt Date: 20190709
  Transmission Date: 20191004
  Serious: Yes (Hospitalization, Other)
  Sender: FDA-Public Use
  Company Number: US-UNITED THERAPEUTICS-UNT-2019-007218

PATIENT
  Age: 37 Year
  Sex: Female
  Weight: 123.36 kg

DRUGS (12)
  1. OPSUMIT [Concomitant]
     Active Substance: MACITENTAN
     Indication: PRODUCT USED FOR UNKNOWN INDICATION
     Dosage: UNK
     Route: 065
  2. REMODULIN [Suspect]
     Active Substance: TREPROSTINIL
     Dosage: 0.1255 ?G/KG, CONTINUING
     Route: 041
  3. REMODULIN [Suspect]
     Active Substance: TREPROSTINIL
     Indication: PULMONARY ARTERIAL HYPERTENSION
     Dosage: 0.1215 ?G/KG, CONTINUING
     Route: 041
     Dates: start: 20140624
  4. REMODULIN [Suspect]
     Active Substance: TREPROSTINIL
     Dosage: UNK, CONTINUING
     Route: 041
  5. REMODULIN [Suspect]
     Active Substance: TREPROSTINIL
     Dosage: 0.124 ?G/KG, CONTINUING
     Route: 041
  6. REMODULIN [Suspect]
     Active Substance: TREPROSTINIL
     Dosage: 0.136 ?G/KG, CONTINUING
     Route: 041
  7. TADALAFIL. [Concomitant]
     Active Substance: TADALAFIL
     Indication: PRODUCT USED FOR UNKNOWN INDICATION
     Dosage: UNK
     Route: 065
  8. REMODULIN [Suspect]
     Active Substance: TREPROSTINIL
     Indication: PULMONARY ARTERIAL HYPERTENSION
     Dosage: 0.1235 ?G/KG, CONTINUING
     Route: 041
  9. REMODULIN [Suspect]
     Active Substance: TREPROSTINIL
     Dosage: UNK, CONTINUING
     Route: 041
  10. REMODULIN [Suspect]
     Active Substance: TREPROSTINIL
     Dosage: 0.128 ?G/KG, CONTINUING
     Route: 041
  11. REMODULIN [Suspect]
     Active Substance: TREPROSTINIL
     Dosage: 0.1325 ?G/KG, CONTINUING
     Route: 041
  12. REMODULIN [Suspect]
     Active Substance: TREPROSTINIL
     Dosage: 0.130 ?G/KG, CONTINUING
     Route: 041

REACTIONS (14)
  - Dyspnoea [Unknown]
  - Abdominal pain [Unknown]
  - Injection site pain [Recovering/Resolving]
  - Platelet count decreased [Not Recovered/Not Resolved]
  - Weight increased [Recovered/Resolved]
  - Injection site erythema [Recovering/Resolving]
  - Injection site discharge [Recovering/Resolving]
  - Epistaxis [Recovered/Resolved]
  - Injection site haemorrhage [Unknown]
  - Dermatitis contact [Not Recovered/Not Resolved]
  - Injection site pruritus [Recovering/Resolving]
  - Oedema peripheral [Recovered/Resolved]
  - Injection site rash [Not Recovered/Not Resolved]
  - Proteinuria [Not Recovered/Not Resolved]

NARRATIVE: CASE EVENT DATE: 20190411
